FAERS Safety Report 5588449-5 (Version None)
Quarter: 2008Q1

REPORT INFORMATION
  Report Type: 
  Country: None (occurrence: None)
  Receive Date: 20080111
  Receipt Date: 20071231
  Transmission Date: 20080703
  Serious: Yes (Death)
  Sender: FDA-Public Use
  Company Number: US-MERCK-0801USA00179

PATIENT
  Age: 76 Year
  Sex: Female

DRUGS (6)
  1. TIAMATE [Suspect]
     Route: 048
  2. ATENOLOL [Suspect]
     Route: 048
  3. [THERAPY UNSPECIFIED] [Suspect]
     Route: 048
  4. CLOPIDOGREL BISULFATE [Suspect]
     Route: 048
  5. [THERAPY UNSPECIFIED] [Suspect]
     Route: 048
  6. [THERAPY UNSPECIFIED] [Suspect]
     Route: 048

REACTIONS (3)
  - DRUG TOXICITY [None]
  - MEDICATION ERROR [None]
  - OVERDOSE [None]
